FAERS Safety Report 8395521-3 (Version None)
Quarter: 2012Q2

REPORT INFORMATION
  Report Type: 
  Country: None (occurrence: None)
  Receive Date: 20120530
  Receipt Date: 20110526
  Transmission Date: 20120825
  Serious: No
  Sender: FDA-Public Use
  Company Number: US-GLAXOSMITHKLINE-A0930266A

PATIENT
  Sex: Female

DRUGS (1)
  1. VENTOLIN [Suspect]
     Route: 065
     Dates: start: 20110525

REACTIONS (1)
  - HYPOAESTHESIA ORAL [None]
